FAERS Safety Report 7998925-3 (Version None)
Quarter: 2011Q4

REPORT INFORMATION
  Report Type: 
  Country: None (occurrence: None)
  Receive Date: 20111221
  Receipt Date: 20111215
  Transmission Date: 20120403
  Serious: Yes (Death)
  Sender: FDA-Public Use
  Company Number: JP-GLAXOSMITHKLINE-B0769991A

PATIENT
  Sex: Female
  Weight: 49 kg

DRUGS (7)
  1. BETAMETHASONE [Concomitant]
     Indication: BRAIN OEDEMA
     Route: 048
     Dates: start: 20100310, end: 20100422
  2. ALDACTONE [Concomitant]
     Indication: ASCITES
     Route: 048
     Dates: start: 20081215, end: 20100422
  3. XELODA [Suspect]
     Indication: PRODUCT USED FOR UNKNOWN INDICATION
     Dosage: 600MG PER DAY
     Route: 048
     Dates: start: 20100401, end: 20100404
  4. TYKERB [Suspect]
     Indication: BREAST CANCER
     Dosage: 1250MG PER DAY
     Route: 048
     Dates: start: 20100401, end: 20100407
  5. XELODA [Suspect]
     Dosage: 1200MG PER DAY
     Route: 048
     Dates: start: 20100405, end: 20100408
  6. KANAMYCIN [Concomitant]
     Indication: HEPATIC CIRRHOSIS
     Route: 048
     Dates: start: 20081215, end: 20100422
  7. URSO 250 [Concomitant]
     Indication: HEPATIC CIRRHOSIS
     Route: 048
     Dates: start: 20081215, end: 20100422

REACTIONS (1)
  - HEPATIC FAILURE [None]
